FAERS Safety Report 20057796 (Version 2)
Quarter: 2021Q4

REPORT INFORMATION
  Report Type: Spontaneous
  Country: RU (occurrence: None)
  Receive Date: 20211111
  Receipt Date: 20211202
  Transmission Date: 20220303
  Serious: Yes (Other)
  Sender: FDA-Public Use
  Company Number: 2021A799271

PATIENT
  Age: 53 Year
  Sex: Female

DRUGS (22)
  1. BRILINTA [Suspect]
     Active Substance: TICAGRELOR
     Indication: Ischaemic stroke
     Route: 048
     Dates: start: 20211023
  2. BRILINTA [Suspect]
     Active Substance: TICAGRELOR
     Indication: Antiplatelet therapy
     Route: 048
     Dates: start: 20211023
  3. BRILINTA [Suspect]
     Active Substance: TICAGRELOR
     Indication: Ischaemic stroke
     Route: 048
     Dates: start: 20211023
  4. BRILINTA [Suspect]
     Active Substance: TICAGRELOR
     Indication: Antiplatelet therapy
     Route: 048
     Dates: start: 20211023
  5. LOSAP [Concomitant]
     Indication: Hypertension
     Route: 065
     Dates: start: 20211028
  6. CORDAFLEX [Concomitant]
     Active Substance: NIFEDIPINE
     Indication: Hypertension
     Dosage: 10.0MG AS REQUIRED
     Route: 065
     Dates: start: 20211025, end: 20211028
  7. CORDAFLEX [Concomitant]
     Active Substance: NIFEDIPINE
     Indication: Angina pectoris
     Dosage: 10.0MG AS REQUIRED
     Route: 065
     Dates: start: 20211025, end: 20211028
  8. CORDAFLEX [Concomitant]
     Active Substance: NIFEDIPINE
     Indication: Hypertensive crisis
     Dosage: 10.0MG AS REQUIRED
     Route: 065
     Dates: start: 20211025, end: 20211028
  9. MOXONIDINE [Concomitant]
     Active Substance: MOXONIDINE
     Indication: Hypertension
     Dosage: 0.2MG AS REQUIRED
     Route: 065
     Dates: start: 20211025
  10. AMLODIPINE [Concomitant]
     Active Substance: AMLODIPINE BESYLATE
     Indication: Hypertension
     Route: 065
     Dates: start: 20211028, end: 20211103
  11. AMLODIPINE [Concomitant]
     Active Substance: AMLODIPINE BESYLATE
     Indication: Hypertension
     Route: 065
     Dates: start: 20211103
  12. SPIRONOLACTONE [Concomitant]
     Active Substance: SPIRONOLACTONE
     Indication: Essential hypertension
     Route: 065
     Dates: start: 20211028, end: 20211103
  13. SPIRONOLACTONE [Concomitant]
     Active Substance: SPIRONOLACTONE
     Indication: Essential hypertension
     Route: 065
     Dates: start: 20211103
  14. ATORVASTATIN [Concomitant]
     Active Substance: ATORVASTATIN
     Indication: Blood cholesterol increased
     Route: 065
     Dates: start: 20211028
  15. ATORVASTATIN [Concomitant]
     Active Substance: ATORVASTATIN
     Indication: High density lipoprotein
     Route: 065
     Dates: start: 20211028
  16. BISOPROLOL FUMARATE [Concomitant]
     Active Substance: BISOPROLOL FUMARATE
     Indication: Hypertension
     Route: 065
     Dates: start: 20211028
  17. OMEPRAZOLE [Concomitant]
     Active Substance: OMEPRAZOLE
     Indication: Gastric disorder
     Route: 065
     Dates: start: 20211028
  18. CERAXONI [Concomitant]
     Indication: Ischaemic stroke
     Route: 065
     Dates: start: 20211023, end: 20211104
  19. CERAXONI [Concomitant]
     Indication: Haemorrhagic stroke
     Route: 065
     Dates: start: 20211023, end: 20211104
  20. ENOXAPARIN SODIUM [Concomitant]
     Active Substance: ENOXAPARIN SODIUM
     Indication: Embolism venous
     Route: 065
     Dates: start: 20211025, end: 20211028
  21. CHOLINE ALFOSCERATE [Concomitant]
     Active Substance: CHOLINE ALFOSCERATE
     Indication: Cerebrovascular disorder
     Route: 065
     Dates: start: 20211103, end: 20211112
  22. MAGNESIUM ASPARTATE\POTASSIUM ASPARTATE [Concomitant]
     Active Substance: MAGNESIUM ASPARTATE\POTASSIUM ASPARTATE
     Indication: Hypokalaemia
     Route: 065
     Dates: start: 20211028, end: 20211101

REACTIONS (2)
  - Cerebrovascular accident [Not Recovered/Not Resolved]
  - Off label use [Not Recovered/Not Resolved]

NARRATIVE: CASE EVENT DATE: 20211026
